FAERS Safety Report 5062095-4 (Version None)
Quarter: 2006Q3

REPORT INFORMATION
  Report Type: 
  Country: None (occurrence: None)
  Receive Date: 20060721
  Receipt Date: 20060525
  Transmission Date: 20061208
  Serious: Yes (Hospitalization)
  Sender: FDA-Public Use
  Company Number: 2006059038

PATIENT
  Age: 62 Year
  Sex: Female

DRUGS (1)
  1. CELEBREX [Suspect]
     Indication: ARTHRITIS
     Dosage: 400 MG (200 MG, 2 IN 1 D)
     Dates: start: 19990601

REACTIONS (12)
  - BLOOD CHOLESTEROL INCREASED [None]
  - BREAST CANCER FEMALE [None]
  - CARDIAC VALVE DISEASE [None]
  - CEREBROVASCULAR ACCIDENT [None]
  - CHEST PAIN [None]
  - CHRONIC OBSTRUCTIVE PULMONARY DISEASE [None]
  - CONVULSION [None]
  - ELECTROCARDIOGRAM ST-T CHANGE [None]
  - HYPERSENSITIVITY [None]
  - HYPERTENSION [None]
  - ISCHAEMIC STROKE [None]
  - MEMORY IMPAIRMENT [None]
